FAERS Safety Report 13521150 (Version 1)
Quarter: 2017Q2

REPORT INFORMATION
  Report Type: Spontaneous
  Country: US (occurrence: US)
  Receive Date: 20170505
  Receipt Date: 20170505
  Transmission Date: 20170830
  Serious: Yes (Other)
  Sender: FDA-Public Use
  Company Number: None

PATIENT
  Age: 51 Year
  Sex: Male
  Weight: 144 kg

DRUGS (12)
  1. LIPITOR [Concomitant]
     Active Substance: ATORVASTATIN CALCIUM
  2. CELEXA [Concomitant]
     Active Substance: CITALOPRAM HYDROBROMIDE
  3. BREXPIPRAZOLE [Suspect]
     Active Substance: BREXPIPRAZOLE
     Indication: MAJOR DEPRESSION
     Route: 048
     Dates: start: 20170403, end: 20170504
  4. REXULTIA (BREXPIPRAZOLE) [Concomitant]
  5. FOLIC ACID. [Concomitant]
     Active Substance: FOLIC ACID
  6. IBUPROFEN. [Concomitant]
     Active Substance: IBUPROFEN
  7. THIAMINE HCL [Concomitant]
  8. NATURE^S BLEND VITAMIN D3 [Concomitant]
  9. BENICAR [Concomitant]
     Active Substance: OLMESARTAN MEDOXOMIL
  10. COLACE [Concomitant]
     Active Substance: DOCUSATE SODIUM
  11. MEDICATION ASSISTED THERAPY (MAT) [Concomitant]
  12. VIVITROL IM [Concomitant]

REACTIONS (5)
  - Dysstasia [None]
  - Anxiety [None]
  - Feeling abnormal [None]
  - Akathisia [None]
  - Irritability [None]

NARRATIVE: CASE EVENT DATE: 20170504
